FAERS Safety Report 4274742-5 (Version None)
Quarter: 2004Q1

REPORT INFORMATION
  Report Type: 
  Country: None (occurrence: None)
  Receive Date: 20040115
  Receipt Date: 20031231
  Transmission Date: 20041129
  Serious: Yes (Hospitalization)
  Sender: FDA-Public Use
  Company Number: EWC040137533

PATIENT
  Age: 65 Year
  Sex: Male

DRUGS (1)
  1. GEMCITABINE HYDROCHLORIDE-IV (GEMCITABINE) [Suspect]
     Indication: PANCREATIC CARCINOMA
     Dosage: 1.2 G/1 WEEK
     Dates: end: 20031203

REACTIONS (5)
  - CYTOMEGALOVIRUS INFECTION [None]
  - PIGMENTATION DISORDER [None]
  - PNEUMOCYSTIS CARINII PNEUMONIA [None]
  - VASCULITIS [None]
  - VENOUS INSUFFICIENCY [None]
